FAERS Safety Report 8367234-5 (Version None)
Quarter: 2012Q2

REPORT INFORMATION
  Report Type: 
  Country: None (occurrence: None)
  Receive Date: 20120517
  Receipt Date: 20120516
  Transmission Date: 20120825
  Serious: Yes (Other)
  Sender: FDA-Public Use
  Company Number: US-PFIZER INC-2012119398

PATIENT
  Age: 85 Year
  Sex: Female
  Weight: 84.807 kg

DRUGS (4)
  1. LIPITOR [Suspect]
     Indication: BLOOD CHOLESTEROL INCREASED
     Dosage: 10 MG, DAILY
  2. ZOLOFT [Suspect]
     Indication: DEPRESSION
     Dosage: 100 MG, DAILY
     Dates: end: 20120401
  3. LIPITOR [Suspect]
     Dosage: 20 MG, DAILY
  4. CLONIDINE [Concomitant]
     Indication: HYPERTENSION
     Dosage: ONE AND A HALF TABLET OF 0.1 MG, DAILY
     Route: 048

REACTIONS (1)
  - DEPRESSION [None]
